FAERS Safety Report 11423022 (Version 1)
Quarter: 2015Q3

REPORT INFORMATION
  Report Type: Spontaneous
  Country: AR (occurrence: AR)
  Receive Date: 20150827
  Receipt Date: 20150827
  Transmission Date: 20151125
  Serious: Yes (Hospitalization)
  Sender: FDA-Public Use
  Company Number: AR-BAYER-2015-404748

PATIENT
  Age: 43 Year
  Sex: Female

DRUGS (1)
  1. ULTRAVIST [Suspect]
     Active Substance: IOPROMIDE
     Indication: COMPUTERISED TOMOGRAM
     Dosage: 100 ML, UNK

REACTIONS (5)
  - Hypoaesthesia oral [Recovered/Resolved]
  - Hypotonia [Recovered/Resolved]
  - Hypotension [Recovered/Resolved]
  - Lip oedema [Recovered/Resolved]
  - Eyelid oedema [Recovered/Resolved]
